FAERS Safety Report 4367861-6 (Version None)
Quarter: 2004Q2

REPORT INFORMATION
  Report Type: 
  Country: None (occurrence: None)
  Receive Date: 20040601
  Receipt Date: 20040601
  Transmission Date: 20050107
  Serious: Yes (Hospitalization)
  Sender: FDA-Public Use
  Company Number: None

PATIENT
  Age: 71 Year
  Sex: Male

DRUGS (12)
  1. TEQUIN [Suspect]
     Indication: DIARRHOEA
     Dosage: 400 MG QD ORAL
     Route: 048
     Dates: start: 20040429, end: 20040430
  2. ALLOPURINOL [Concomitant]
  3. CAPTOPRIL [Concomitant]
  4. DICYCLOMINE [Concomitant]
  5. DOCUSATE CALCIUM [Concomitant]
  6. GABAPENTIN [Concomitant]
  7. LORTAB [Concomitant]
  8. LOPERAMIDE HCL [Concomitant]
  9. GLUCOVANCE [Concomitant]
  10. OMEPRAZOLE [Concomitant]
  11. SIMVASTATIN [Concomitant]
  12. WARFARIN SODIUM [Concomitant]

REACTIONS (1)
  - HYPOGLYCAEMIA [None]
